FAERS Safety Report 12920385 (Version 1)
Quarter: 2016Q4

REPORT INFORMATION
  Report Type: Report from Study
  Country: DE (occurrence: DE)
  Receive Date: 20161108
  Receipt Date: 20161108
  Transmission Date: 20170207
  Serious: Yes (Death)
  Sender: FDA-Public Use
  Company Number: DE-ROCHE-1827028

PATIENT

DRUGS (1)
  1. CAPECITABINE. [Suspect]
     Active Substance: CAPECITABINE
     Indication: BREAST CANCER METASTATIC
     Route: 065

REACTIONS (3)
  - Fatigue [Recovered/Resolved]
  - Vomiting [Recovered/Resolved]
  - Dyspnoea [Fatal]

NARRATIVE: CASE EVENT DATE: 20111031
